FAERS Safety Report 4426829-1 (Version None)
Quarter: 2004Q3

REPORT INFORMATION
  Report Type: 
  Country: None (occurrence: None)
  Receive Date: 20040816
  Receipt Date: 20040804
  Transmission Date: 20050211
  Serious: Yes (Other)
  Sender: FDA-Public Use
  Company Number: GB-GLAXOSMITHKLINE-B0341605A

PATIENT

DRUGS (2)
  1. FLIXOTIDE [Suspect]
     Route: 055
  2. SERETIDE [Suspect]
     Route: 055

REACTIONS (2)
  - PAIN [None]
  - PSORIASIS [None]
